FAERS Safety Report 15125259 (Version 2)
Quarter: 2018Q3

REPORT INFORMATION
  Report Type: Spontaneous
  Country: TR (occurrence: TR)
  Receive Date: 20180710
  Receipt Date: 20180719
  Transmission Date: 20181010
  Serious: Yes (Other)
  Sender: FDA-Public Use
  Company Number: PHHY2016TR186819

PATIENT
  Sex: Female
  Weight: 1.7 kg

DRUGS (4)
  1. AZATHIOPRINE. [Suspect]
     Active Substance: AZATHIOPRINE
     Indication: FOETAL EXPOSURE DURING PREGNANCY
     Dosage: MATERNAL DOSE: 25 MG (2X1)
     Route: 064
  2. TACROLIMUS. [Suspect]
     Active Substance: TACROLIMUS
     Indication: FOETAL EXPOSURE DURING PREGNANCY
     Dosage: MATERNAL DOSE: 1 MG (2X2)
     Route: 064
  3. METHYLPREDNISOLONE. [Suspect]
     Active Substance: METHYLPREDNISOLONE
     Indication: FOETAL EXPOSURE DURING PREGNANCY
     Dosage: MATERNAL DOSE: 20 MG
     Route: 064
  4. ALFAMETILDOPA [Suspect]
     Active Substance: METHYLDOPA
     Indication: FOETAL EXPOSURE DURING PREGNANCY
     Dosage: MATERNAL DOSE: 250 MG (3X1)
     Route: 064

REACTIONS (3)
  - Foetal exposure during pregnancy [Unknown]
  - Premature baby [Unknown]
  - Low birth weight baby [Unknown]
